FAERS Safety Report 17461200 (Version 4)
Quarter: 2020Q3

REPORT INFORMATION
  Report Type: Spontaneous
  Country: JP (occurrence: JP)
  Receive Date: 20200226
  Receipt Date: 20200702
  Transmission Date: 20201102
  Serious: Yes (Hospitalization, Other)
  Sender: FDA-Public Use
  Company Number: JP-PFIZER INC-2020073118

PATIENT
  Age: 30 Year
  Sex: Female

DRUGS (5)
  1. IDARUBICIN [Concomitant]
     Active Substance: IDARUBICIN
     Indication: MYELOID LEUKAEMIA
     Dosage: UNK, 2 CYCLIC (TWO COURSES OF CHEMOTHERAPY)
  2. IDARUBICIN [Concomitant]
     Active Substance: IDARUBICIN
     Indication: MYELODYSPLASTIC SYNDROME
  3. CYTARABINE. [Suspect]
     Active Substance: CYTARABINE
     Indication: MYELODYSPLASTIC SYNDROME
  4. CYTARABINE. [Suspect]
     Active Substance: CYTARABINE
     Indication: MYELOID LEUKAEMIA
     Dosage: UNK, 2 CYCLIC (TWO COURSES OF CHEMOTHERAPY)
  5. LEVOFLOXACIN. [Suspect]
     Active Substance: LEVOFLOXACIN
     Indication: ANTIBIOTIC PROPHYLAXIS
     Dosage: UNK

REACTIONS (5)
  - Product use in unapproved indication [Unknown]
  - Alpha haemolytic streptococcal infection [Recovered/Resolved]
  - Streptococcal bacteraemia [Recovered/Resolved]
  - Haemophagocytic lymphohistiocytosis [Recovered/Resolved]
  - Off label use [Unknown]
